FAERS Safety Report 14229172 (Version 1)
Quarter: 2017Q4

REPORT INFORMATION
  Report Type: Spontaneous
  Country: US (occurrence: None)
  Receive Date: 20171124
  Receipt Date: 20171124
  Transmission Date: 20180321
  Serious: No
  Sender: FDA-Public Use
  Company Number: None

PATIENT
  Age: 61 Year
  Sex: Female

DRUGS (1)
  1. HUMIRA [Suspect]
     Active Substance: ADALIMUMAB
     Indication: PSORIASIS
     Route: 058
     Dates: start: 20170901

REACTIONS (4)
  - Erythema [None]
  - Swelling face [None]
  - Oedema peripheral [None]
  - Stomatitis [None]

NARRATIVE: CASE EVENT DATE: 20170901
